FAERS Safety Report 8067022-3 (Version None)
Quarter: 2012Q1

REPORT INFORMATION
  Report Type: 
  Country: None (occurrence: None)
  Receive Date: 20120124
  Receipt Date: 20120118
  Transmission Date: 20120608
  Serious: Yes (Other)
  Sender: FDA-Public Use
  Company Number: GB-JNJFOC-20111110962

PATIENT
  Sex: Male
  Weight: 2.63 kg

DRUGS (3)
  1. STELARA [Suspect]
     Indication: FOETAL EXPOSURE DURING PREGNANCY
     Route: 064
  2. EPIDURAL ANESTHESIA [Concomitant]
     Indication: FOETAL EXPOSURE DURING PREGNANCY
     Route: 015
     Dates: start: 20111004, end: 20111004
  3. STELARA [Suspect]
     Indication: EXPOSURE VIA FATHER
     Route: 064

REACTIONS (1)
  - PREMATURE BABY [None]
